FAERS Safety Report 22165208 (Version 2)
Quarter: 2023Q2

REPORT INFORMATION
  Report Type: Report from Study
  Country: BE (occurrence: BE)
  Receive Date: 20230403
  Receipt Date: 20230503
  Transmission Date: 20230722
  Serious: Yes (Other)
  Sender: FDA-Public Use
  Company Number: BE-ABBVIE-4295025

PATIENT
  Age: 67 Year
  Sex: Male
  Weight: 82 kg

DRUGS (5)
  1. CARBIDOPA\LEVODOPA [Suspect]
     Active Substance: CARBIDOPA\LEVODOPA
     Indication: Parkinson^s disease
     Route: 050
     Dates: start: 20191118
  2. CARBIDOPA\LEVODOPA [Suspect]
     Active Substance: CARBIDOPA\LEVODOPA
     Dosage: MD: 9.0 ML, CD: 3.1 ML/H, ED: 2.5 ML DURING 16 HOURS
     Route: 050
     Dates: start: 20220412
  3. PRAMIPEXOLE [Concomitant]
     Active Substance: PRAMIPEXOLE
     Indication: Product used for unknown indication
     Dosage: TWICE A DAY AT 08.00 AND 20.00?STRENGTH: 1MG
  4. BENSERAZIDE\LEVODOPA [Concomitant]
     Active Substance: BENSERAZIDE\LEVODOPA
     Indication: Product used for unknown indication
     Dosage: 2 CAPSULE?STRENGTH: 125 MG
  5. BENSERAZIDE\LEVODOPA [Concomitant]
     Active Substance: BENSERAZIDE\LEVODOPA
     Indication: Product used for unknown indication
     Dosage: 2 CAPSULE?FREQUENCY TEXT: AT 22.00 ?FORM STRENGTH: 125 MILLIGRAM

REACTIONS (6)
  - Shoulder operation [Recovered/Resolved]
  - Osteoarthritis [Not Recovered/Not Resolved]
  - Freezing phenomenon [Unknown]
  - Arthralgia [Unknown]
  - Parkinson^s disease [Unknown]
  - Joint dislocation [Recovered/Resolved]

NARRATIVE: CASE EVENT DATE: 20230221
